FAERS Safety Report 4548032-7 (Version None)
Quarter: 2004Q4

REPORT INFORMATION
  Report Type: 
  Country: None (occurrence: None)
  Receive Date: 20041227
  Receipt Date: 20040921
  Transmission Date: 20050328
  Serious: No
  Sender: FDA-Public Use
  Company Number: 04P-163-0274490-00

PATIENT
  Age: 55 Year
  Sex: Female
  Weight: 73.4827 kg

DRUGS (6)
  1. HUMIRA [Suspect]
     Indication: RHEUMATOID ARTHRITIS
     Dosage: 40 MG, 1 IN 2 WK, SUBCUTANEOUS
     Route: 058
     Dates: start: 20040601
  2. METHOTREXATE SODIUM [Concomitant]
  3. FOLIC ACID [Concomitant]
  4. CALCIUM GLUCONATE [Concomitant]
  5. FISH OIL [Concomitant]
  6. MULTI-VITAMINS [Concomitant]

REACTIONS (5)
  - COUGH [None]
  - DRUG INEFFECTIVE [None]
  - ECZEMA [None]
  - OEDEMA PERIPHERAL [None]
  - ONYCHORRHEXIS [None]
